FAERS Safety Report 9197893 (Version 2)
Quarter: 2013Q2

REPORT INFORMATION
  Report Type: Spontaneous
  Country: US (occurrence: US)
  Receive Date: 20130328
  Receipt Date: 20130422
  Transmission Date: 20140414
  Serious: No
  Sender: FDA-Public Use
  Company Number: US-PFIZER INC-2013096287

PATIENT
  Sex: Female

DRUGS (2)
  1. ALPRAZOLAM [Suspect]
     Indication: SLEEP DISORDER
     Dosage: 0.25 MG, UNK
     Route: 060
  2. ALPRAZOLAM [Suspect]
     Dosage: 0.5 MG, UNK

REACTIONS (8)
  - Headache [Unknown]
  - Eye disorder [Unknown]
  - Feeling abnormal [Unknown]
  - Muscle tightness [Unknown]
  - Glossodynia [Unknown]
  - Drug ineffective [Unknown]
  - Tension [Unknown]
  - Anxiety [Unknown]
